FAERS Safety Report 14386349 (Version 2)
Quarter: 2019Q3

REPORT INFORMATION
  Report Type: Spontaneous
  Country: US (occurrence: US)
  Receive Date: 20180115
  Receipt Date: 20190830
  Transmission Date: 20191004
  Serious: Yes (Other)
  Sender: FDA-Public Use
  Company Number: US-SA-2017SA139126

PATIENT
  Age: 62 Year
  Sex: Female
  Weight: 86.2 kg

DRUGS (14)
  1. DOCETAXEL. [Suspect]
     Active Substance: DOCETAXEL
     Dosage: 139 MG,Q3W
     Route: 051
     Dates: start: 20150310, end: 20150310
  2. CARBOPLATIN. [Concomitant]
     Active Substance: CARBOPLATIN
     Indication: BREAST CANCER FEMALE
     Dosage: UNK, Q3W
     Dates: start: 20141215, end: 20141215
  3. PARAPLATIN [Concomitant]
     Active Substance: CARBOPLATIN
  4. LOMOTIL [LOPERAMIDE HYDROCHLORIDE] [Concomitant]
     Dosage: UNK, UNK
  5. NEULASTA [Concomitant]
     Active Substance: PEGFILGRASTIM
     Dosage: UNK
     Dates: start: 20141124, end: 20161130
  6. BENADRYL [Concomitant]
     Active Substance: DIPHENHYDRAMINE HYDROCHLORIDE
     Dosage: UNK UNK, UNK
  7. ANASTROZOLE. [Concomitant]
     Active Substance: ANASTROZOLE
     Indication: CANCER HORMONAL THERAPY
     Dosage: UNK
     Dates: start: 20150101
  8. HERCEPTIN [Concomitant]
     Active Substance: TRASTUZUMAB
     Indication: BREAST CANCER FEMALE
     Dosage: UNK, Q3W
     Dates: start: 20141215, end: 20141215
  9. HERCEPTIN [Concomitant]
     Active Substance: TRASTUZUMAB
     Dosage: UNK
     Dates: start: 20150310, end: 20150310
  10. BENICAR [Concomitant]
     Active Substance: OLMESARTAN MEDOXOMIL
     Dosage: UNK
     Dates: start: 20080101, end: 20170101
  11. ZOFRAN [Concomitant]
     Active Substance: ONDANSETRON HYDROCHLORIDE
     Dosage: UNK
     Dates: start: 20141124, end: 20161231
  12. DOCETAXEL. [Suspect]
     Active Substance: DOCETAXEL
     Indication: BREAST CANCER FEMALE
     Dosage: 139 MG,Q3W
     Route: 042
     Dates: start: 20141215, end: 20141215
  13. CARBOPLATIN. [Concomitant]
     Active Substance: CARBOPLATIN
     Dosage: UNK UNK, Q3W
     Dates: start: 20150310, end: 20150310
  14. NEXIUM [Concomitant]
     Active Substance: ESOMEPRAZOLE MAGNESIUM
     Dosage: UNK
     Dates: start: 20141108

REACTIONS (1)
  - Alopecia [Recovering/Resolving]

NARRATIVE: CASE EVENT DATE: 20150115
